FAERS Safety Report 5733789-X (Version None)
Quarter: 2008Q2

REPORT INFORMATION
  Report Type: 
  Country: None (occurrence: None)
  Receive Date: 20080509
  Receipt Date: 20080429
  Transmission Date: 20081010
  Serious: Yes (Other)
  Sender: FDA-Public Use
  Company Number: AU-PFIZER INC-2008027326

PATIENT
  Age: 72 Year
  Sex: Female

DRUGS (3)
  1. MINIPRESS [Suspect]
     Indication: HYPERTENSION
     Route: 048
  2. ATACAND [Concomitant]
  3. GLUCOSAMINE [Concomitant]

REACTIONS (7)
  - ABDOMINAL DISCOMFORT [None]
  - HALLUCINATION, VISUAL [None]
  - MYOPIA [None]
  - TONGUE COATED [None]
  - URINARY INCONTINENCE [None]
  - VISION BLURRED [None]
  - WEIGHT INCREASED [None]
